FAERS Safety Report 9185982 (Version 1)
Quarter: 2013Q1

REPORT INFORMATION
  Report Type: Spontaneous
  Country: US (occurrence: US)
  Receive Date: 20130325
  Receipt Date: 20130325
  Transmission Date: 20140127
  Serious: Yes (Life-Threatening, Other)
  Sender: FDA-Public Use
  Company Number: US-B.I. PHARMACEUTICALS,INC./RIDGEFIELD-2013-BI-07420GD

PATIENT
  Age: 67 Year
  Sex: Male
  Weight: 121 kg

DRUGS (3)
  1. PRADAXA [Suspect]
     Indication: ATRIAL FIBRILLATION
     Dosage: 300 MG
     Route: 048
  2. UNFRACTIONATED HEPARIN [Suspect]
     Dosage: 5000 U
  3. HEPARIN [Suspect]
     Dosage: CONTINUOUS INFUSION WITH MONITORING BY ACTIVATED CLOTTING TIME
     Route: 042

REACTIONS (2)
  - Procedural haemorrhage [Recovered/Resolved]
  - Hypotension [Unknown]
